FAERS Safety Report 22844829 (Version 2)
Quarter: 2024Q3

REPORT INFORMATION
  Report Type: Spontaneous
  Country: US (occurrence: US)
  Receive Date: 20230821
  Receipt Date: 20240819
  Transmission Date: 20241017
  Serious: No
  Sender: ANI
  Company Number: US-ANIPHARMA-2023-US-011614

PATIENT
  Age: 52 Year
  Sex: Female

DRUGS (6)
  1. ANASTROZOLE [Suspect]
     Active Substance: ANASTROZOLE
     Indication: Product used for unknown indication
     Route: 065
  2. LYNPARZA [Suspect]
     Active Substance: OLAPARIB
     Dosage: 300 MILLIGRAMS TWO TIMES A DAY
     Route: 048
     Dates: start: 20230403
  3. VITAMIN B COMPLEX [Concomitant]
     Active Substance: CYANOCOBALAMIN\DEXPANTHENOL\NIACINAMIDE\PYRIDOXINE HYDROCHLORIDE\RIBOFLAVIN 5^-PHOSPHATE SODIUM\THIA
  4. MAGNESIUM [Concomitant]
     Active Substance: MAGNESIUM
  5. Carlson^s Elite Omega 3 plus B + K [Concomitant]
  6. LETROZOLE [Concomitant]
     Active Substance: LETROZOLE

REACTIONS (4)
  - Back pain [Unknown]
  - Arthralgia [Unknown]
  - Blood cholesterol increased [Unknown]
  - Neuropathy peripheral [Recovered/Resolved]
